FAERS Safety Report 10588415 (Version 4)
Quarter: 2014Q4

REPORT INFORMATION
  Report Type: Spontaneous
  Country: US (occurrence: US)
  Receive Date: 20141117
  Receipt Date: 20141222
  Transmission Date: 20150529
  Serious: Yes (Hospitalization)
  Sender: FDA-Public Use
  Company Number: US-UNITED THERAPEUTICS-UNT-2014-010086

PATIENT
  Sex: Female
  Weight: 83.45 kg

DRUGS (3)
  1. ADCIRCA [Concomitant]
     Active Substance: TADALAFIL
     Indication: PRODUCT USED FOR UNKNOWN INDICATION
  2. REMODULIN [Suspect]
     Active Substance: TREPROSTINIL
     Indication: PULMONARY HYPERTENSION
     Dosage: 0.096 ?G/KG, CONTINUING
     Route: 041
     Dates: start: 20130316
  3. REMODULIN [Suspect]
     Active Substance: TREPROSTINIL
     Dosage: 0.096 ?G/KG/MIN, CONTINUING
     Route: 041
     Dates: start: 20141002

REACTIONS (7)
  - Tremor [Unknown]
  - Device leakage [Unknown]
  - Injection site haemorrhage [Unknown]
  - Device damage [Unknown]
  - Thrombosis in device [Unknown]
  - Nervousness [Unknown]
  - Drug dose omission [Unknown]

NARRATIVE: CASE EVENT DATE: 2014
